FAERS Safety Report 15836781 (Version 3)
Quarter: 2019Q2

REPORT INFORMATION
  Report Type: Report from Study
  Country: ZA (occurrence: ZA)
  Receive Date: 20190117
  Receipt Date: 20190419
  Transmission Date: 20190711
  Serious: Yes (Disabling)
  Sender: FDA-Public Use
  Company Number: ZA-SAKK-2018SA295180AA

PATIENT
  Age: 59 Year
  Sex: Female

DRUGS (4)
  1. BIGSENS [Concomitant]
     Active Substance: METFORMIN HYDROCHLORIDE
     Dosage: 1000 MG, BID (BEFORE BREAKFAST, BEFORE SUPPER)
     Dates: start: 20181022
  2. OPTISULIN (INSULIN GLARGINE) [Suspect]
     Active Substance: INSULIN GLARGINE
     Dosage: 16 U, HS
     Dates: start: 20181022
  3. OPTISULIN (INSULIN GLARGINE) [Suspect]
     Active Substance: INSULIN GLARGINE
     Indication: TYPE 2 DIABETES MELLITUS
     Dosage: 16 U, QD, NIGHT TIME
     Dates: start: 20140101
  4. INSULIN GLULISINE [Suspect]
     Active Substance: INSULIN GLULISINE
     Indication: TYPE 2 DIABETES MELLITUS
     Dosage: 7 U, TID (BEFORE BREAKFAST, BEFORE LUNCH AND BEFORE SUPPER)
     Dates: start: 20181022

REACTIONS (8)
  - Abdominal pain [Not Recovered/Not Resolved]
  - Abdominal pain upper [Recovered/Resolved]
  - Glycosylated haemoglobin increased [Unknown]
  - Abdominal distension [Unknown]
  - Weight increased [Not Recovered/Not Resolved]
  - Dizziness [Recovered/Resolved]
  - Hypoglycaemia [Recovered/Resolved]
  - Diarrhoea [Not Recovered/Not Resolved]

NARRATIVE: CASE EVENT DATE: 20180701
